FAERS Safety Report 6046320-9 (Version None)
Quarter: 2009Q1

REPORT INFORMATION
  Report Type: 
  Country: None (occurrence: None)
  Receive Date: 20090122
  Receipt Date: 20090114
  Transmission Date: 20090719
  Serious: Yes (Hospitalization)
  Sender: FDA-Public Use
  Company Number: US-AMGEN-KDL328814

PATIENT
  Sex: Female
  Weight: 63.6 kg

DRUGS (4)
  1. PROCRIT [Suspect]
     Indication: ANAEMIA
     Route: 065
     Dates: start: 20080201
  2. LISINOPRIL [Concomitant]
  3. VERAPAMIL [Concomitant]
  4. LEVOXYL [Concomitant]

REACTIONS (5)
  - ANOREXIA [None]
  - ASTHENIA [None]
  - DRUG INEFFECTIVE [None]
  - PNEUMONIA [None]
  - WEIGHT DECREASED [None]
